FAERS Safety Report 4325425-4 (Version None)
Quarter: 2004Q1

REPORT INFORMATION
  Report Type: 
  Country: None (occurrence: None)
  Receive Date: 20040324
  Receipt Date: 20040312
  Transmission Date: 20041129
  Serious: Yes (Other)
  Sender: FDA-Public Use
  Company Number: 2004203836US

PATIENT
  Age: 61 Year
  Sex: Female

DRUGS (9)
  1. BEXTRA [Suspect]
     Indication: ARTHRITIS
     Dosage: 10 MG, QD,
     Dates: end: 20040308
  2. ASACOL [Concomitant]
  3. EVISTA (RALOCIFENE HYDROCHLORIDE) [Concomitant]
  4. PREVACID [Concomitant]
  5. THEO-DUR [Concomitant]
  6. VITAMINS NOS (VITAMINS NOS) [Concomitant]
  7. CALCIUM [Concomitant]
  8. VITAMIN D [Concomitant]
  9. CLARITIN [Concomitant]

REACTIONS (1)
  - BASEDOW'S DISEASE [None]
